FAERS Safety Report 17901143 (Version 1)
Quarter: 2020Q2

REPORT INFORMATION
  Report Type: Spontaneous
  Country: US (occurrence: US)
  Receive Date: 20200616
  Receipt Date: 20200616
  Transmission Date: 20200714
  Serious: Yes (Other)
  Sender: FDA-Public Use
  Company Number: US-ABBVIE-20K-163-3442254-00

PATIENT
  Sex: Female
  Weight: 89.89 kg

DRUGS (1)
  1. SYNTHROID [Suspect]
     Active Substance: LEVOTHYROXINE SODIUM
     Indication: HYPOTHYROIDISM
     Dosage: AT LEAST 10 YEARS
     Route: 048
     Dates: start: 2010

REACTIONS (5)
  - Hypothyroidism [Unknown]
  - Device difficult to use [Unknown]
  - Obesity [Recovering/Resolving]
  - Weight decreased [Unknown]
  - Hyperparathyroidism [Recovered/Resolved]

NARRATIVE: CASE EVENT DATE: 2011
